FAERS Safety Report 10432724 (Version 1)
Quarter: 2014Q3

REPORT INFORMATION
  Report Type: Report from Study
  Country: ID (occurrence: ID)
  Receive Date: 20140905
  Receipt Date: 20140905
  Transmission Date: 20150326
  Serious: Yes (Death)
  Sender: FDA-Public Use
  Company Number: ID-BAYER-2014-129702

PATIENT
  Age: 70 Year
  Sex: Male

DRUGS (1)
  1. NEXAVAR [Suspect]
     Active Substance: SORAFENIB
     Indication: HEPATOCELLULAR CARCINOMA
     Dosage: 200MG
     Route: 048
     Dates: start: 20140605, end: 20140808

REACTIONS (2)
  - Hepatic failure [Fatal]
  - Haemorrhagic ascites [Fatal]

NARRATIVE: CASE EVENT DATE: 20140811
